FAERS Safety Report 24057849 (Version 1)
Quarter: 2024Q3

REPORT INFORMATION
  Report Type: Spontaneous
  Country: US (occurrence: US)
  Receive Date: 20240707
  Receipt Date: 20240707
  Transmission Date: 20241017
  Serious: Yes (Death, Hospitalization, Other)
  Sender: DR REDDYS
  Company Number: US-DRL-USA-LIT/USA/24/0009487

PATIENT
  Age: 76 Year
  Sex: Female

DRUGS (10)
  1. AMIODARONE [Suspect]
     Active Substance: AMIODARONE
     Indication: Product used for unknown indication
  2. HEPARIN [Suspect]
     Active Substance: HEPARIN SODIUM
     Indication: Myocarditis
     Route: 041
  3. LIDOCAINE [Suspect]
     Active Substance: LIDOCAINE
     Indication: Product used for unknown indication
  4. METHYLPREDNISOLONE [Suspect]
     Active Substance: METHYLPREDNISOLONE
     Indication: Evidence based treatment
  5. ADENOSINE [Suspect]
     Active Substance: ADENOSINE
     Indication: Myocarditis
  6. ADENOSINE [Suspect]
     Active Substance: ADENOSINE
     Indication: Myositis
  7. PROCAINAMIDE HYDROCHLORIDE [Suspect]
     Active Substance: PROCAINAMIDE HYDROCHLORIDE
     Indication: Myocarditis
  8. PROCAINAMIDE HYDROCHLORIDE [Suspect]
     Active Substance: PROCAINAMIDE HYDROCHLORIDE
     Indication: Myositis
  9. NIVOLUMAB [Concomitant]
     Active Substance: NIVOLUMAB
     Indication: Immunochemotherapy
  10. IPILIMUMAB [Concomitant]
     Active Substance: IPILIMUMAB
     Indication: Immunochemotherapy

REACTIONS (4)
  - Cardiac arrest [Fatal]
  - Drug ineffective [Unknown]
  - Condition aggravated [Unknown]
  - Product use in unapproved indication [Unknown]
